FAERS Safety Report 4701889-9 (Version None)
Quarter: 2005Q2

REPORT INFORMATION
  Report Type: 
  Country: None (occurrence: None)
  Receive Date: 20050627
  Receipt Date: 20050616
  Transmission Date: 20051028
  Serious: Yes (Other)
  Sender: FDA-Public Use
  Company Number: 2005089266

PATIENT
  Age: 62 Year
  Weight: 82.1011 kg

DRUGS (6)
  1. PREDNISONE TAB [Suspect]
     Indication: PNEUMOCYSTIS JIROVECI PNEUMONIA
     Dosage: 40 MG (2 IN 1 D),INTRAVENOUS
     Route: 042
     Dates: start: 20050523, end: 20050526
  2. TRISENOX [Suspect]
     Indication: MULTIPLE MYELOMA
     Dosage: 21 MG (DAYS 1,4,8,11),INTRAVENOUS
     Route: 042
     Dates: end: 20050612
  3. VELCADE [Suspect]
     Indication: MULTIPLE MYELOMA
     Dosage: 1.5 MG (DAYS 1,4,8,11),INTRAVENOUS
     Route: 042
     Dates: end: 20050512
  4. BACTRIM DS [Suspect]
     Indication: PNEUMOCYSTIS JIROVECI PNEUMONIA
     Dosage: (2 IN 1 D),ORAL
     Route: 048
     Dates: start: 20050523, end: 20050526
  5. POTASSIUM CHLORIDE [Suspect]
     Indication: ILL-DEFINED DISORDER
     Dosage: ORAL
     Route: 048
     Dates: end: 20050526
  6. .. [Concomitant]

REACTIONS (6)
  - CARBON DIOXIDE DECREASED [None]
  - COUGH [None]
  - HYPERKALAEMIA [None]
  - PNEUMOCYSTIS JIROVECI PNEUMONIA [None]
  - PROTEIN TOTAL INCREASED [None]
  - PYREXIA [None]
